FAERS Safety Report 21446764 (Version 4)
Quarter: 2023Q1

REPORT INFORMATION
  Report Type: Spontaneous
  Country: US (occurrence: US)
  Receive Date: 20221012
  Receipt Date: 20230329
  Transmission Date: 20230418
  Serious: Yes (Death, Hospitalization, Other)
  Sender: FDA-Public Use
  Company Number: US-PFIZER INC-202201221730

PATIENT
  Age: 79 Year
  Sex: Male
  Weight: 59.42 kg

DRUGS (4)
  1. VYNDAMAX [Suspect]
     Active Substance: TAFAMIDIS
     Indication: Cardiac failure
     Dosage: 61 MG, 1X/DAY
     Route: 048
     Dates: end: 20221008
  2. VYNDAMAX [Suspect]
     Active Substance: TAFAMIDIS
     Indication: Cardiac amyloidosis
  3. JARDIANCE [Concomitant]
     Active Substance: EMPAGLIFLOZIN
     Dosage: 10 MG
  4. JARDIANCE [Concomitant]
     Active Substance: EMPAGLIFLOZIN
     Dosage: 5 MG, 1X/DAY

REACTIONS (11)
  - Respiratory arrest [Fatal]
  - Cardio-respiratory arrest [Fatal]
  - Cardiac failure congestive [Fatal]
  - Amyloidosis [Fatal]
  - Disease progression [Fatal]
  - Lung disorder [Unknown]
  - Fall [Unknown]
  - Fluid retention [Recovering/Resolving]
  - Blood glucose decreased [Recovered/Resolved]
  - Weight decreased [Unknown]
  - Wheelchair user [Unknown]

NARRATIVE: CASE EVENT DATE: 20230227
